FAERS Safety Report 15135216 (Version 1)
Quarter: 2018Q3

REPORT INFORMATION
  Report Type: Spontaneous
  Country: US (occurrence: US)
  Receive Date: 20180616
  Receipt Date: 20180616
  Transmission Date: 20181010
  Serious: Yes (Other)
  Sender: FDA-Public Use
  Company Number: None

PATIENT
  Age: 8 Week
  Sex: Female
  Weight: 45 kg

DRUGS (1)
  1. AMPHETAMINE DEXTROAMPHETAMINE [Suspect]
     Active Substance: AMPHETAMINE\DEXTROAMPHETAMINE
     Indication: ATTENTION DEFICIT/HYPERACTIVITY DISORDER
     Dosage: ?          QUANTITY:1 TABLET(S);?
     Route: 048
     Dates: start: 20180604, end: 20180615

REACTIONS (7)
  - Anxiety [None]
  - Therapeutic response changed [None]
  - Drug ineffective [None]
  - Pain [None]
  - Product availability issue [None]
  - Anger [None]
  - Product substitution issue [None]

NARRATIVE: CASE EVENT DATE: 20180615
